FAERS Safety Report 8370765-5 (Version None)
Quarter: 2012Q2

REPORT INFORMATION
  Report Type: 
  Country: None (occurrence: None)
  Receive Date: 20120517
  Receipt Date: 20120502
  Transmission Date: 20120825
  Serious: Yes (Hospitalization, Other)
  Sender: FDA-Public Use
  Company Number: 2012P1019622

PATIENT
  Age: 17 Year
  Sex: Male

DRUGS (8)
  1. DEFLAZACORT [Concomitant]
  2. PREVACID [Concomitant]
  3. SYNTHROID [Concomitant]
  4. CARAFATE [Concomitant]
  5. SOLODYN [Suspect]
     Indication: ROSACEA
     Dosage: QD;PO
     Route: 048
     Dates: start: 20110912, end: 20120418
  6. SOLODYN [Suspect]
     Indication: ACNE
     Dosage: QD;PO
     Route: 048
     Dates: start: 20110912, end: 20120418
  7. PROZAC [Concomitant]
  8. DOXYCYCLINE [Concomitant]

REACTIONS (1)
  - RHABDOMYOLYSIS [None]
